FAERS Safety Report 24972654 (Version 2)
Quarter: 2025Q1

REPORT INFORMATION
  Report Type: Report from Study
  Country: US (occurrence: US)
  Receive Date: 20250215
  Receipt Date: 20250312
  Transmission Date: 20250409
  Serious: No
  Sender: ABBVIE
  Company Number: US-ABBVIE-6127880

PATIENT
  Age: 74 Year
  Sex: Female

DRUGS (1)
  1. VYALEV [Suspect]
     Active Substance: FOSCARBIDOPA\FOSLEVODOPA
     Indication: Parkinson^s disease
     Route: 058
     Dates: start: 202412

REACTIONS (7)
  - Catheter site discolouration [Not Recovered/Not Resolved]
  - Catheter site pain [Recovering/Resolving]
  - Catheter site pain [Recovering/Resolving]
  - Catheter site erythema [Recovered/Resolved]
  - Catheter site inflammation [Not Recovered/Not Resolved]
  - Catheter site papule [Recovering/Resolving]
  - Catheter site haematoma [Unknown]

NARRATIVE: CASE EVENT DATE: 20250206
